FAERS Safety Report 4338826-5 (Version None)
Quarter: 2004Q1

REPORT INFORMATION
  Report Type: 
  Country: None (occurrence: None)
  Receive Date: 20040329
  Receipt Date: 20040212
  Transmission Date: 20041129
  Serious: No
  Sender: FDA-Public Use
  Company Number: 04P-163-0250021-00

PATIENT
  Age: 33 Year
  Sex: Female
  Weight: 65.7716 kg

DRUGS (11)
  1. HUMIRA [Suspect]
     Indication: RHEUMATOID ARTHRITIS
     Dosage: 40 MG, 1 IN 2 WK, SUBCUTANEOUS
     Route: 058
     Dates: start: 20031216, end: 20040119
  2. HUMIRA [Suspect]
     Indication: RHEUMATOID ARTHRITIS
     Dosage: 40 MG, 1 IN 2 WK, SUBCUTANEOUS
     Route: 058
     Dates: start: 20040203, end: 20040205
  3. METHOTREXATE [Concomitant]
  4. PREDNISONE [Concomitant]
  5. LEVOTHYROXINE SODIUM [Concomitant]
  6. MULTIVITAMIN [Concomitant]
  7. FOLIC ACID [Concomitant]
  8. RISEDRONATE SODIUM [Concomitant]
  9. CELECOXIB [Concomitant]
  10. PROPACET 100 [Concomitant]
  11. ALPRAZOLAM [Concomitant]

REACTIONS (2)
  - DYSPNOEA [None]
  - WHEEZING [None]
